FAERS Safety Report 22854433 (Version 3)
Quarter: 2024Q3

REPORT INFORMATION
  Report Type: Spontaneous
  Country: US (occurrence: US)
  Receive Date: 20230823
  Receipt Date: 20240830
  Transmission Date: 20241017
  Serious: No
  Sender: SANDOZ
  Company Number: US-002147023-NVSC2023US158605

PATIENT
  Sex: Female

DRUGS (2)
  1. CARVEDILOL [Suspect]
     Active Substance: CARVEDILOL
     Indication: Product used for unknown indication
     Dosage: UNK
     Route: 065
  2. ENTRESTO [Suspect]
     Active Substance: SACUBITRIL\VALSARTAN
     Indication: Product used for unknown indication
     Dosage: 2 DF, QD, 1 DOSAGE FORM, BID (49/51MG)
     Route: 048
     Dates: start: 202209

REACTIONS (1)
  - Hypotension [Unknown]
